FAERS Safety Report 18108308 (Version 1)
Quarter: 2020Q3

REPORT INFORMATION
  Report Type: Spontaneous
  Country: US (occurrence: US)
  Receive Date: 20200804
  Receipt Date: 20200804
  Transmission Date: 20201103
  Serious: Yes (Hospitalization)
  Sender: FDA-Public Use
  Company Number: US-MYLANLABS-2020M1069318

PATIENT
  Age: 55 Year
  Sex: Male

DRUGS (11)
  1. MACITENTAN [Suspect]
     Active Substance: MACITENTAN
     Indication: CARDIAC OUTPUT DECREASED
  2. MILRINONE [Suspect]
     Active Substance: MILRINONE
     Indication: DRUG THERAPY
     Dosage: UNK
     Route: 065
  3. MILRINONE [Suspect]
     Active Substance: MILRINONE
     Indication: CARDIAC OUTPUT DECREASED
  4. EPOPROSTENOL. [Suspect]
     Active Substance: EPOPROSTENOL
     Indication: CARDIAC OUTPUT DECREASED
     Dosage: DOSE: 8 NG/KG/MIN (REDUCED AND EVENTUALLY DISCONTINUED)
     Route: 051
  5. EPOPROSTENOL. [Suspect]
     Active Substance: EPOPROSTENOL
     Dosage: (REDUCED AND EVENTUALLY DISCONTINUED)
     Route: 051
  6. SILDENAFIL. [Suspect]
     Active Substance: SILDENAFIL
     Indication: DRUG THERAPY
     Dosage: 20 MILLIGRAM,THREE TIMES DAILY
     Route: 065
  7. SILDENAFIL. [Suspect]
     Active Substance: SILDENAFIL
     Indication: CARDIAC OUTPUT DECREASED
  8. EPOPROSTENOL. [Suspect]
     Active Substance: EPOPROSTENOL
     Indication: DRUG THERAPY
     Dosage: UNK
  9. MACITENTAN [Suspect]
     Active Substance: MACITENTAN
     Indication: DRUG THERAPY
     Dosage: 10 MILLIGRAM, QD
     Route: 065
  10. EPOPROSTENOL. [Suspect]
     Active Substance: EPOPROSTENOL
     Indication: CARDIAC OUTPUT DECREASED
  11. EPOPROSTENOL. [Suspect]
     Active Substance: EPOPROSTENOL
     Indication: DRUG THERAPY
     Dosage: DOSE: 2 NG/KG/MIN (INITIAL, WITH GRADUAL UP?TITRATION)
     Route: 051

REACTIONS (2)
  - Condition aggravated [Not Recovered/Not Resolved]
  - Pulmonary veno-occlusive disease [Not Recovered/Not Resolved]
